FAERS Safety Report 16525205 (Version 1)
Quarter: 2019Q3

REPORT INFORMATION
  Report Type: Report from Study
  Country: NG (occurrence: NG)
  Receive Date: 20190702
  Receipt Date: 20190702
  Transmission Date: 20191004
  Serious: Yes (Hospitalization, Other)
  Sender: FDA-Public Use
  Company Number: NG-JNJFOC-20190634634

PATIENT
  Age: 28 Year
  Sex: Male

DRUGS (2)
  1. TRAMADOL HYDROCHLORIDE. [Suspect]
     Active Substance: TRAMADOL HYDROCHLORIDE
     Indication: PAIN
  2. TRAMADOL HYDROCHLORIDE. [Suspect]
     Active Substance: TRAMADOL HYDROCHLORIDE
     Indication: BACK PAIN
     Route: 048
     Dates: start: 20170120, end: 20170120

REACTIONS (11)
  - Seizure [Recovered/Resolved]
  - Heart rate increased [Recovered/Resolved]
  - Toxicity to various agents [Recovered/Resolved]
  - Incoherent [Recovered/Resolved]
  - Respiratory distress [Recovered/Resolved]
  - Intentional product misuse [Recovered/Resolved]
  - Blood pressure increased [Recovered/Resolved]
  - Overdose [Recovered/Resolved]
  - Circulatory collapse [Recovered/Resolved]
  - Loss of consciousness [Recovered/Resolved]
  - Generalised tonic-clonic seizure [Recovered/Resolved]

NARRATIVE: CASE EVENT DATE: 2017
